FAERS Safety Report 14995024 (Version 1)
Quarter: 2018Q2

REPORT INFORMATION
  Report Type: Spontaneous
  Country: US (occurrence: US)
  Receive Date: 20180608
  Receipt Date: 20180608
  Transmission Date: 20180711
  Serious: Yes (Hospitalization)
  Sender: FDA-Public Use
  Company Number: None

PATIENT
  Age: 43 Year
  Sex: Male

DRUGS (1)
  1. KRATOM [Suspect]
     Active Substance: MITRAGYNINE\HERBALS

REACTIONS (21)
  - Somnolence [None]
  - Dyspnoea [None]
  - Ischaemia [None]
  - Respiratory failure [None]
  - Alanine aminotransferase increased [None]
  - Blood creatinine [None]
  - Hypotension [None]
  - Respiratory acidosis [None]
  - Liver injury [None]
  - Sepsis [None]
  - Blood potassium increased [None]
  - Respiratory depression [None]
  - Acute kidney injury [None]
  - Oxygen saturation decreased [None]
  - Irritability [None]
  - Aspartate aminotransferase increased [None]
  - Obesity [None]
  - Multi-organ disorder [None]
  - Cyanosis [None]
  - Hypoxia [None]
  - Sleep apnoea syndrome [None]
